FAERS Safety Report 10014858 (Version 1)
Quarter: 2014Q1

REPORT INFORMATION
  Report Type: Spontaneous
  Country: BR (occurrence: BR)
  Receive Date: 20140317
  Receipt Date: 20140317
  Transmission Date: 20141002
  Serious: Yes (Other)
  Sender: FDA-Public Use
  Company Number: BR-JNJFOC-20140308967

PATIENT
  Age: 12 Month
  Sex: Female

DRUGS (1)
  1. REMICADE [Suspect]
     Indication: COLITIS
     Route: 042
     Dates: start: 20140311

REACTIONS (2)
  - Anaphylactic shock [Not Recovered/Not Resolved]
  - Off label use [Not Recovered/Not Resolved]
